FAERS Safety Report 19623532 (Version 1)
Quarter: 2021Q3

REPORT INFORMATION
  Report Type: Other
  Country: GB (occurrence: GB)
  Receive Date: 20210729
  Receipt Date: 20210729
  Transmission Date: 20211014
  Serious: Yes (Death, Life-Threatening, Hospitalization, Other)
  Sender: FDA-Public Use
  Company Number: GB-DEXPHARM-20211126

PATIENT
  Age: 30 Year
  Sex: Female

DRUGS (2)
  1. PURELL HAND SANITISING GEL VF481 [Interacting]
     Active Substance: ALCOHOL
     Indication: ANTIDEPRESSANT THERAPY
     Dosage: PURELL HAND SANITISING GEL (CONTAINING ETHANOL AND ISOPROPANOL AT 66 PERCENT WEIGHT PER VOLUME)
  2. VENLAFAXINE [Suspect]
     Active Substance: VENLAFAXINE HYDROCHLORIDE
     Indication: ANTIDEPRESSANT THERAPY
     Dates: start: 2013

REACTIONS (3)
  - Alcohol interaction [Fatal]
  - Respiratory depression [Fatal]
  - Alcohol poisoning [Fatal]

NARRATIVE: CASE EVENT DATE: 2013
